FAERS Safety Report 19080768 (Version 1)
Quarter: 2021Q2

REPORT INFORMATION
  Report Type: Spontaneous
  Country: US (occurrence: US)
  Receive Date: 20210401
  Receipt Date: 20210401
  Transmission Date: 20210717
  Serious: No
  Sender: FDA-Public Use
  Company Number: US-SA-2021SA104032

PATIENT
  Sex: Female

DRUGS (1)
  1. DUPIXENT [Suspect]
     Active Substance: DUPILUMAB
     Indication: DERMATITIS ALLERGIC
     Dosage: 300 MG
     Route: 058

REACTIONS (9)
  - Injection site pain [Unknown]
  - Rash pruritic [Unknown]
  - Eczema [Unknown]
  - Fungal infection [Unknown]
  - Injection site bruising [Unknown]
  - Asthma [Unknown]
  - Chest discomfort [Unknown]
  - Fear of injection [Unknown]
  - Rash [Unknown]
